FAERS Safety Report 6183721-2 (Version None)
Quarter: 2009Q2

REPORT INFORMATION
  Report Type: 
  Country: None (occurrence: None)
  Receive Date: 20090506
  Receipt Date: 20090421
  Transmission Date: 20091009
  Serious: Yes (Other)
  Sender: FDA-Public Use
  Company Number: 1000005590

PATIENT
  Age: 49 Year
  Sex: Male

DRUGS (8)
  1. MILNACIPRAN (MILNACIPRAN HYDROCHLORIDE) (TABLETS) [Suspect]
     Indication: FIBROMYALGIA
     Dosage: 150 MG (50 MG, 3 IN 1 D), ORAL; 100 MG (50 MG, 3 IN 1 D), ORAL
     Route: 048
     Dates: start: 20080616, end: 20080902
  2. MILNACIPRAN (MILNACIPRAN HYDROCHLORIDE) (TABLETS) [Suspect]
     Indication: FIBROMYALGIA
     Dosage: 150 MG (50 MG, 3 IN 1 D), ORAL; 100 MG (50 MG, 3 IN 1 D), ORAL
     Route: 048
     Dates: start: 20080903, end: 20081220
  3. MILNACIPRAN (MILNACIPRAN HYDROCHLORIDE) (TABLETS) [Suspect]
     Indication: FIBROMYALGIA
     Dosage: 150 MG (50 MG, 3 IN 1 D), ORAL; 100 MG (50 MG, 3 IN 1 D), ORAL
     Route: 048
     Dates: start: 20081221, end: 20090107
  4. GABAPENTIN [Suspect]
     Dosage: 1200 MG (400 MG, 3 IN 1 D); 600 MG (200 MG, 3 IN 1 D); 900 MG (300 MG, 3 IN 1 D)
     Dates: start: 20080801, end: 20080807
  5. GABAPENTIN [Suspect]
     Dosage: 1200 MG (400 MG, 3 IN 1 D); 600 MG (200 MG, 3 IN 1 D); 900 MG (300 MG, 3 IN 1 D)
     Dates: start: 20080808, end: 20080815
  6. GABAPENTIN [Suspect]
     Dosage: 1200 MG (400 MG, 3 IN 1 D); 600 MG (200 MG, 3 IN 1 D); 900 MG (300 MG, 3 IN 1 D)
     Dates: start: 20080816, end: 20081220
  7. GABAPENTIN [Suspect]
     Dosage: 1200 MG (400 MG, 3 IN 1 D); 600 MG (200 MG, 3 IN 1 D); 900 MG (300 MG, 3 IN 1 D)
     Dates: start: 20081221, end: 20090107
  8. LENDORMIN [Concomitant]

REACTIONS (6)
  - DRUG ERUPTION [None]
  - LIP OEDEMA [None]
  - LYMPH NODE PAIN [None]
  - LYMPHADENOPATHY [None]
  - LYMPHOCYTE STIMULATION TEST POSITIVE [None]
  - ORAL MUCOSAL ERUPTION [None]
